FAERS Safety Report 12220783 (Version 1)
Quarter: 2016Q1

REPORT INFORMATION
  Report Type: Spontaneous
  Country: US (occurrence: US)
  Receive Date: 20160330
  Receipt Date: 20160330
  Transmission Date: 20160526
  Serious: Yes (Other)
  Sender: FDA-Public Use
  Company Number: US-BIOGEN-2016BI00211549

PATIENT
  Sex: Female

DRUGS (1)
  1. TYSABRI [Suspect]
     Active Substance: NATALIZUMAB
     Indication: MULTIPLE SCLEROSIS
     Route: 065
     Dates: start: 20070109, end: 20110215

REACTIONS (4)
  - Premature labour [Unknown]
  - Uterine rupture [Unknown]
  - Uterine hypertonus [Unknown]
  - Maternal exposure during pregnancy [Unknown]
